FAERS Safety Report 7053387-8 (Version None)
Quarter: 2010Q4

REPORT INFORMATION
  Report Type: 
  Country: None (occurrence: None)
  Receive Date: 20101020
  Receipt Date: 20100901
  Transmission Date: 20110411
  Serious: Yes (Hospitalization)
  Sender: FDA-Public Use
  Company Number: US-MYLANLABS-2010S1016014

PATIENT
  Age: 65 Year
  Sex: Female
  Weight: 88.45 kg

DRUGS (3)
  1. LAMOTRIGINE [Suspect]
     Indication: EPILEPSY
     Route: 048
     Dates: start: 20090401, end: 20100201
  2. LAMOTRIGINE [Suspect]
     Route: 048
     Dates: start: 20090401, end: 20100201
  3. PHENOBARBITAL [Concomitant]
     Indication: EPILEPSY
     Route: 048

REACTIONS (3)
  - DRUG EFFECT DECREASED [None]
  - GRAND MAL CONVULSION [None]
  - INJURY [None]
